FAERS Safety Report 10886559 (Version 1)
Quarter: 2015Q1

REPORT INFORMATION
  Report Type: Spontaneous
  Country: US (occurrence: US)
  Receive Date: 20150304
  Receipt Date: 20150304
  Transmission Date: 20150721
  Serious: Yes (Other)
  Sender: FDA-Public Use
  Company Number: US-ELI_LILLY_AND_COMPANY-US201502007407

PATIENT
  Age: 71 Year
  Sex: Female

DRUGS (15)
  1. ECOTRIN [Concomitant]
     Active Substance: ASPIRIN
     Dosage: 81 MG, UNKNOWN
  2. CLOPIDOGREL [Concomitant]
     Active Substance: CLOPIDOGREL BISULFATE
     Dosage: 75 MG, UNKNOWN
  3. METOPROLOL [Concomitant]
     Active Substance: METOPROLOL
     Dosage: 50 MG, UNKNOWN
  4. CRESTOR [Concomitant]
     Active Substance: ROSUVASTATIN CALCIUM
  5. LANTUS [Suspect]
     Active Substance: INSULIN GLARGINE
     Indication: PRODUCT USED FOR UNKNOWN INDICATION
     Dosage: 15 U, EACH MORNING
     Route: 065
  6. QUINAPRIL [Concomitant]
     Active Substance: QUINAPRIL\QUINAPRIL HYDROCHLORIDE
     Dosage: 40 MG, UNKNOWN
  7. METANX [Concomitant]
     Active Substance: LEVOMEFOLATE CALCIUM\METHYLCOBALAMIN\PYRIDOXAL PHOSPHATE ANHYDROUS
  8. HUMALOG [Suspect]
     Active Substance: INSULIN LISPRO
     Indication: PRODUCT USED FOR UNKNOWN INDICATION
     Dosage: UNK UNK, EACH EVENING
     Route: 065
     Dates: end: 2014
  9. TIAZAC [Concomitant]
     Active Substance: DILTIAZEM HYDROCHLORIDE
     Dosage: 180 MG, UNKNOWN
  10. LANTUS [Suspect]
     Active Substance: INSULIN GLARGINE
     Dosage: 32 U, EACH EVENING
     Route: 065
  11. DIOVAN [Concomitant]
     Active Substance: VALSARTAN
     Dosage: 160 MG, UNKNOWN
  12. HUMALOG [Suspect]
     Active Substance: INSULIN LISPRO
     Indication: PRODUCT USED FOR UNKNOWN INDICATION
     Dosage: 30 U, PRN
     Route: 065
     Dates: start: 2014
  13. CORTISONE [Suspect]
     Active Substance: CORTISONE\HYDROCORTISONE
     Indication: BRONCHITIS
     Dosage: UNK
     Route: 065
     Dates: start: 20141214
  14. NIACIN. [Concomitant]
     Active Substance: NIACIN
     Dosage: 500 MG, UNKNOWN
  15. RALOXIFENE HCL [Concomitant]
     Dosage: 60 MG, UNKNOWN

REACTIONS (10)
  - Stress [Unknown]
  - Hypoglycaemia [Unknown]
  - Memory impairment [Unknown]
  - Blood glucose fluctuation [Unknown]
  - Bronchitis [Recovered/Resolved with Sequelae]
  - Injection site nodule [Not Recovered/Not Resolved]
  - Wrong drug administered [Unknown]
  - Morton^s neuralgia [Not Recovered/Not Resolved]
  - Hyperglycaemia [Recovered/Resolved]
  - Glycosylated haemoglobin increased [Unknown]

NARRATIVE: CASE EVENT DATE: 2014
